FAERS Safety Report 7743468-5 (Version None)
Quarter: 2011Q3

REPORT INFORMATION
  Report Type: 
  Country: None (occurrence: None)
  Receive Date: 20110909
  Receipt Date: 20110909
  Transmission Date: 20111222
  Serious: Yes (Hospitalization)
  Sender: FDA-Public Use
  Company Number: None

PATIENT
  Sex: Male
  Weight: 147.7 kg

DRUGS (5)
  1. DOXORUBICIN HYDROCHLORIDE [Suspect]
     Dosage: 131 MG
  2. RITUXIMAB (MOAB C2B8 ANTI CD20, CHIMERIC) [Suspect]
     Dosage: 980 MG
  3. VINCRISTINE SULFATE [Suspect]
     Dosage: 2 MG
  4. CYCLOPHOSPHAMIDE [Suspect]
     Dosage: 1960 MG
  5. PREDNISONE [Suspect]
     Dosage: 500 MG

REACTIONS (3)
  - LEUKOCYTOCLASTIC VASCULITIS [None]
  - FEBRILE NEUTROPENIA [None]
  - VASCULITIS [None]
